FAERS Safety Report 22669240 (Version 2)
Quarter: 2023Q4

REPORT INFORMATION
  Report Type: Spontaneous
  Country: US (occurrence: US)
  Receive Date: 20230704
  Receipt Date: 20231205
  Transmission Date: 20240110
  Serious: Yes (Other)
  Sender: FDA-Public Use
  Company Number: US-JNJFOC-20230665719

PATIENT
  Age: 6 Year
  Sex: Male

DRUGS (7)
  1. TYLENOL REGULAR STRENGTH [Suspect]
     Active Substance: ACETAMINOPHEN
     Indication: Fatigue
     Route: 064
     Dates: start: 201308, end: 201404
  2. TYLENOL REGULAR STRENGTH [Suspect]
     Active Substance: ACETAMINOPHEN
     Indication: Headache
  3. TYLENOL REGULAR STRENGTH [Suspect]
     Active Substance: ACETAMINOPHEN
     Indication: Pain
  4. TYLENOL EXTRA STRENGTH [Suspect]
     Active Substance: ACETAMINOPHEN
     Indication: Headache
     Route: 064
     Dates: start: 201307, end: 201404
  5. TYLENOL EXTRA STRENGTH [Suspect]
     Active Substance: ACETAMINOPHEN
     Indication: Pain
  6. TYLENOL EXTRA STRENGTH [Suspect]
     Active Substance: ACETAMINOPHEN
     Indication: Nausea
  7. VALTREX [Concomitant]
     Active Substance: VALACYCLOVIR HYDROCHLORIDE
     Indication: Herpes virus infection
     Route: 064
     Dates: start: 201401, end: 201404

REACTIONS (3)
  - Autism spectrum disorder [Unknown]
  - Foetal exposure during pregnancy [Unknown]
  - Attention deficit hyperactivity disorder [Unknown]

NARRATIVE: CASE EVENT DATE: 20200818
